FAERS Safety Report 17696118 (Version 3)
Quarter: 2021Q1

REPORT INFORMATION
  Report Type: Spontaneous
  Country: US (occurrence: US)
  Receive Date: 20200423
  Receipt Date: 20210310
  Transmission Date: 20210419
  Serious: Yes (Death, Other)
  Sender: FDA-Public Use
  Company Number: US-NAPPMUNDI-USA-2020-0151071

PATIENT
  Age: 28 Year
  Sex: Female

DRUGS (3)
  1. OXYCONTIN [Suspect]
     Active Substance: OXYCODONE HYDROCHLORIDE
     Indication: PAIN
     Dosage: 20 MG, BID
     Route: 048
     Dates: start: 201708
  2. OXYCODONE HCL TABLETS (RHODES 91?490) [Suspect]
     Active Substance: OXYCODONE HYDROCHLORIDE
     Indication: PAIN
     Dosage: 15 MG, PRN
     Route: 048
     Dates: start: 201708
  3. CANNABIS [Suspect]
     Active Substance: CANNABIS SATIVA SUBSP. INDICA TOP
     Indication: DRUG DEPENDENCE
     Route: 065

REACTIONS (7)
  - Substance abuse [Unknown]
  - Guillain-Barre syndrome [Unknown]
  - Nausea [Unknown]
  - Neuropathy peripheral [Unknown]
  - Accidental overdose [Fatal]
  - Drug dependence [Unknown]
  - Vomiting [Unknown]

NARRATIVE: CASE EVENT DATE: 201708
